FAERS Safety Report 5190799-1 (Version None)
Quarter: 2006Q4

REPORT INFORMATION
  Report Type: 
  Country: None (occurrence: None)
  Receive Date: 20061222
  Receipt Date: 20061220
  Transmission Date: 20070319
  Serious: Yes (Hospitalization)
  Sender: FDA-Public Use
  Company Number: US-BRACCO-BDI-008965

PATIENT
  Age: 64 Year
  Sex: Female
  Weight: 88 kg

DRUGS (2)
  1. MULTIHANCE [Suspect]
     Route: 042
  2. OMNISCAN [Suspect]
     Route: 042

REACTIONS (1)
  - NEPHROGENIC FIBROSING DERMOPATHY [None]
